FAERS Safety Report 20764033 (Version 1)
Quarter: 2022Q2

REPORT INFORMATION
  Report Type: Spontaneous
  Country: CA (occurrence: CA)
  Receive Date: 20220428
  Receipt Date: 20220428
  Transmission Date: 20220721
  Serious: Yes (Other)
  Sender: FDA-Public Use
  Company Number: CA-SAMSUNG BIOEPIS-SB-2022-09912

PATIENT
  Age: 27 Year
  Sex: Male
  Weight: 149 kg

DRUGS (2)
  1. INFLIXIMAB [Suspect]
     Active Substance: INFLIXIMAB
     Indication: Crohn^s disease
     Route: 042
  2. TOZINAMERAN [Concomitant]
     Active Substance: TOZINAMERAN
     Indication: Product used for unknown indication
     Dosage: UNKNOWN
     Route: 065

REACTIONS (11)
  - Arthralgia [Unknown]
  - Blood pressure systolic increased [Unknown]
  - Chest pain [Unknown]
  - Discomfort [Unknown]
  - Dyspnoea [Unknown]
  - Faecal calprotectin increased [Unknown]
  - Inflammation [Unknown]
  - Weight increased [Unknown]
  - Infusion site extravasation [Unknown]
  - Off label use [Unknown]
  - Inappropriate schedule of product administration [Unknown]
